FAERS Safety Report 16659980 (Version 8)
Quarter: 2019Q3

REPORT INFORMATION
  Report Type: Report from Study
  Country: CA (occurrence: CA)
  Receive Date: 20190802
  Receipt Date: 20190927
  Transmission Date: 20191004
  Serious: Yes (Other)
  Sender: FDA-Public Use
  Company Number: PHHY2018CA148831

PATIENT
  Age: 69 Year
  Sex: Female

DRUGS (10)
  1. COSENTYX [Suspect]
     Active Substance: SECUKINUMAB
     Indication: PSORIATIC ARTHROPATHY
     Dosage: 150 MG, QW
     Route: 058
     Dates: start: 20181102
  2. SULFASALAZINE. [Concomitant]
     Active Substance: SULFASALAZINE
     Indication: PRODUCT USED FOR UNKNOWN INDICATION
     Route: 065
  3. IRBESARTAN. [Concomitant]
     Active Substance: IRBESARTAN
     Indication: PRODUCT USED FOR UNKNOWN INDICATION
     Dosage: 150 MG, UNK
     Route: 065
  4. COSENTYX [Suspect]
     Active Substance: SECUKINUMAB
     Dosage: 150 MG, QW
     Route: 058
     Dates: start: 20190130
  5. FOLIC ACID. [Suspect]
     Active Substance: FOLIC ACID
     Indication: PRODUCT USED FOR UNKNOWN INDICATION
     Route: 065
  6. COSENTYX [Suspect]
     Active Substance: SECUKINUMAB
     Dosage: 150 MG, QW
     Route: 058
     Dates: start: 20181109
  7. COSENTYX [Suspect]
     Active Substance: SECUKINUMAB
     Dosage: 300 MG, QMO
     Route: 058
     Dates: start: 20190213
  8. LEFLUNOMIDE. [Concomitant]
     Active Substance: LEFLUNOMIDE
     Indication: PRODUCT USED FOR UNKNOWN INDICATION
     Dosage: UNK
     Route: 065
     Dates: start: 20180323
  9. COSENTYX [Suspect]
     Active Substance: SECUKINUMAB
     Dosage: 150 MG, Q2W (SENSOREADY PEN)
     Route: 058
     Dates: start: 20190908
  10. COSENTYX [Suspect]
     Active Substance: SECUKINUMAB
     Dosage: 150 MG, Q2W (SENSOREADY PEN)
     Route: 058

REACTIONS (21)
  - Fungal infection [Unknown]
  - Blood pressure systolic increased [Not Recovered/Not Resolved]
  - Headache [Unknown]
  - Night sweats [Unknown]
  - Pain [Unknown]
  - Sneezing [Unknown]
  - Tooth disorder [Unknown]
  - Pruritus [Unknown]
  - Nightmare [Unknown]
  - Joint swelling [Recovering/Resolving]
  - Injection site pain [Unknown]
  - Nasopharyngitis [Unknown]
  - Blood pressure diastolic decreased [Not Recovered/Not Resolved]
  - Fatigue [Unknown]
  - Heart rate increased [Unknown]
  - Arthritis [Unknown]
  - Mood altered [Unknown]
  - Injection site discomfort [Unknown]
  - Ear infection fungal [Recovering/Resolving]
  - Ear disorder [Unknown]
  - Nausea [Unknown]

NARRATIVE: CASE EVENT DATE: 20181102
